FAERS Safety Report 7228555-2 (Version None)
Quarter: 2011Q1

REPORT INFORMATION
  Report Type: 
  Country: None (occurrence: None)
  Receive Date: 20110117
  Receipt Date: 20110110
  Transmission Date: 20110831
  Serious: Yes (Other)
  Sender: FDA-Public Use
  Company Number: US-BIOGENIDEC-2010BI035489

PATIENT
  Age: 68 Year
  Sex: Male

DRUGS (11)
  1. ASPIRIN [Concomitant]
  2. VITAMIN B COMPLEX [Concomitant]
     Route: 048
  3. AVONEX [Suspect]
     Indication: MULTIPLE SCLEROSIS
     Route: 030
     Dates: start: 20050701
  4. AVONEX [Suspect]
     Route: 030
     Dates: start: 19980101
  5. AMPYRA [Concomitant]
  6. METOPROLOL [Concomitant]
  7. LIPITOR [Concomitant]
  8. ALTACE [Concomitant]
  9. OMEGA 3 POLYUNSATURATED FATTY ACIDS [Concomitant]
     Route: 048
  10. ALLEGRA [Concomitant]
  11. MULTI-VITAMIN [Concomitant]
     Route: 048

REACTIONS (1)
  - PROSTATE CANCER [None]
